FAERS Safety Report 9477283 (Version 1)
Quarter: 2013Q3

REPORT INFORMATION
  Report Type: Spontaneous
  Country: US (occurrence: US)
  Receive Date: 20130826
  Receipt Date: 20130826
  Transmission Date: 20140515
  Serious: No
  Sender: FDA-Public Use
  Company Number: US-009507513-1308USA010080

PATIENT
  Sex: Female

DRUGS (3)
  1. REBETOL [Suspect]
     Indication: HEPATITIS C
     Dosage: 200 MG, TWICE DAILY
     Route: 048
     Dates: start: 2013, end: 2013
  2. PEGINTRON [Suspect]
     Dosage: 80 MICROGRAM, UNK
     Route: 058
     Dates: start: 2013, end: 2013
  3. VICTRELIS [Suspect]
     Dosage: 4 CAPSULES, 3 TIMES DAILY
     Route: 048
     Dates: start: 2013, end: 2013

REACTIONS (1)
  - Hepatitis C [Not Recovered/Not Resolved]
